FAERS Safety Report 8667907 (Version 2)
Quarter: 2012Q4

REPORT INFORMATION
  Report Type: 
  Country: US (occurrence: US)
  Receive Date: 20120717
  Receipt Date: 20120926
  Transmission Date: 20130627
  Serious: Yes (Hospitalization, Other)
  Sender: FDA-Public Use
  Company Number: US-BAYER-2012-070357

PATIENT
  Age: 34 Year
  Sex: Female
  Weight: 86.17 kg

DRUGS (4)
  1. OCELLA [Suspect]
     Indication: CONTRACEPTION
     Dosage: UNK
     Dates: start: 2009, end: 2010
  2. AUGMENTIN [Concomitant]
     Indication: PHARYNGITIS STREPTOCOCCAL
     Dosage: UNK
     Dates: start: 20101217
  3. ZOLPIDEM [Concomitant]
  4. AMOXICILLIN [Concomitant]

REACTIONS (7)
  - Pulmonary embolism [None]
  - Dyspnoea [None]
  - Pain [None]
  - Swelling [None]
  - Mental disorder [None]
  - Gallbladder disorder [None]
  - Cholecystitis chronic [None]
